FAERS Safety Report 7415066-4 (Version None)
Quarter: 2011Q2

REPORT INFORMATION
  Report Type: 
  Country: None (occurrence: None)
  Receive Date: 20110414
  Receipt Date: 20110404
  Transmission Date: 20111010
  Serious: Yes (Other)
  Sender: FDA-Public Use
  Company Number: PT-ROCHE-769895

PATIENT
  Age: 52 Year
  Sex: Female

DRUGS (2)
  1. LETROZOLE [Concomitant]
     Dosage: REPORTED AS: LETROZOL TEVA 2.5MG FREQUECNCY: AT NIGHT
     Route: 048
     Dates: start: 20091201
  2. HERCEPTIN [Suspect]
     Indication: BREAST CANCER
     Route: 065
     Dates: start: 20040101

REACTIONS (1)
  - BREAST CANCER RECURRENT [None]
